FAERS Safety Report 5536422-5 (Version None)
Quarter: 2007Q4

REPORT INFORMATION
  Report Type: 
  Country: None (occurrence: None)
  Receive Date: 20071204
  Receipt Date: 20071123
  Transmission Date: 20080405
  Serious: Yes (Hospitalization)
  Sender: FDA-Public Use
  Company Number: 2007-03944

PATIENT
  Sex: Male
  Weight: 72 kg

DRUGS (11)
  1. VELCADE [Suspect]
     Indication: MULTIPLE MYELOMA
     Dosage: 2.30; 1.70; 2.30
     Dates: start: 20070723, end: 20071002
  2. VELCADE [Suspect]
     Indication: MULTIPLE MYELOMA
     Dosage: 2.30; 1.70; 2.30
     Dates: start: 20071005, end: 20071005
  3. VELCADE [Suspect]
     Indication: MULTIPLE MYELOMA
     Dosage: 2.30; 1.70; 2.30
     Dates: start: 20071015, end: 20071025
  4. IBANDRONATE SODIUM (IBANDRONATE SODIUM) [Concomitant]
  5. METOPROLOL TARTRATE [Concomitant]
  6. WARFARIN SODIUM [Concomitant]
  7. DUTASTERIDE (DUTASTERIDE) [Concomitant]
  8. HYDROXICIN [Concomitant]
  9. FUROSEMIDE [Concomitant]
  10. ENALAPRIL MALEATE [Concomitant]
  11. DUTASTERIDE (DUTASTERIDE) [Concomitant]

REACTIONS (3)
  - ABDOMINAL DISTENSION [None]
  - DECREASED APPETITE [None]
  - FATIGUE [None]
